FAERS Safety Report 23342780 (Version 1)
Quarter: 2023Q4

REPORT INFORMATION
  Report Type: Spontaneous
  Country: DE (occurrence: DE)
  Receive Date: 20231227
  Receipt Date: 20231227
  Transmission Date: 20240110
  Serious: Yes (Life-Threatening)
  Sender: FDA-Public Use
  Company Number: None

PATIENT
  Age: 7 Year
  Sex: Male
  Weight: 16 kg

DRUGS (25)
  1. XEOMIN [Suspect]
     Active Substance: INCOBOTULINUMTOXINA
     Indication: Muscle spasticity
     Route: 030
     Dates: start: 20230802, end: 20230802
  2. XEOMIN [Suspect]
     Active Substance: INCOBOTULINUMTOXINA
     Indication: Muscle spasticity
     Route: 030
     Dates: start: 20220810, end: 20220810
  3. XEOMIN [Suspect]
     Active Substance: INCOBOTULINUMTOXINA
     Indication: Dystonia
     Route: 030
     Dates: start: 20221221, end: 20221221
  4. XEOMIN [Suspect]
     Active Substance: INCOBOTULINUMTOXINA
     Indication: Cerebral palsy
     Route: 030
     Dates: start: 20230426, end: 20230426
  5. MIDAZOLAM HYDROCHLORIDE [Concomitant]
     Active Substance: MIDAZOLAM HYDROCHLORIDE
     Indication: Premedication
     Dosage: 3.75 MG
     Route: 048
     Dates: start: 20220810, end: 20220810
  6. MIDAZOLAM HYDROCHLORIDE [Concomitant]
     Active Substance: MIDAZOLAM HYDROCHLORIDE
     Dosage: 3.75 MG
     Route: 048
     Dates: start: 20221221, end: 20221221
  7. MIDAZOLAM HYDROCHLORIDE [Concomitant]
     Active Substance: MIDAZOLAM HYDROCHLORIDE
     Dosage: 3.75 MG
     Route: 048
     Dates: start: 20230426, end: 20230426
  8. MIDAZOLAM HYDROCHLORIDE [Concomitant]
     Active Substance: MIDAZOLAM HYDROCHLORIDE
     Dosage: 3.75 MG
     Route: 048
     Dates: start: 20230802, end: 20230802
  9. MIDAZOLAM HYDROCHLORIDE [Concomitant]
     Active Substance: MIDAZOLAM HYDROCHLORIDE
     Dosage: 3 MG
     Route: 042
     Dates: start: 20220810, end: 20220810
  10. MIDAZOLAM HYDROCHLORIDE [Concomitant]
     Active Substance: MIDAZOLAM HYDROCHLORIDE
     Dosage: 3 MG
     Route: 042
     Dates: start: 20221221, end: 20221221
  11. MIDAZOLAM HYDROCHLORIDE [Concomitant]
     Active Substance: MIDAZOLAM HYDROCHLORIDE
     Dosage: 4.5 MG
     Route: 042
     Dates: start: 20230426, end: 20230426
  12. MIDAZOLAM HYDROCHLORIDE [Concomitant]
     Active Substance: MIDAZOLAM HYDROCHLORIDE
     Dosage: 4.5
     Route: 042
     Dates: start: 20230802, end: 20230802
  13. ESKETAMINE [Concomitant]
     Active Substance: ESKETAMINE
     Indication: Premedication
     Dosage: 90 MG
     Route: 042
     Dates: start: 20220810, end: 20220810
  14. ESKETAMINE [Concomitant]
     Active Substance: ESKETAMINE
     Dosage: 90 MG
     Route: 042
     Dates: start: 20221221, end: 20221221
  15. ESKETAMINE [Concomitant]
     Active Substance: ESKETAMINE
     Dosage: 125 MG
     Route: 042
     Dates: start: 20230426, end: 20230426
  16. ESKETAMINE [Concomitant]
     Active Substance: ESKETAMINE
     Dosage: 140 MG
     Route: 042
     Dates: start: 20230802, end: 20230802
  17. DIMENHYDRINATE [Concomitant]
     Active Substance: DIMENHYDRINATE
     Dosage: 40 MG
     Dates: start: 20220810, end: 20220810
  18. DIMENHYDRINATE [Concomitant]
     Active Substance: DIMENHYDRINATE
     Dosage: 40 MG
     Dates: start: 20221221, end: 20221221
  19. DIMENHYDRINATE [Concomitant]
     Active Substance: DIMENHYDRINATE
     Dosage: 40 MG
     Dates: start: 20230426, end: 20230426
  20. DIMENHYDRINATE [Concomitant]
     Active Substance: DIMENHYDRINATE
     Dosage: 40 MG
     Dates: start: 20230802, end: 20230802
  21. SODIUM CHLORIDE [Concomitant]
     Active Substance: SODIUM CHLORIDE
     Dosage: 500 ML
     Dates: start: 20220810, end: 20220810
  22. SODIUM CHLORIDE [Concomitant]
     Active Substance: SODIUM CHLORIDE
     Dosage: 500 ML
     Dates: start: 20221221, end: 20221221
  23. CALCIUM CHLORIDE\MAGNESIUM CHLORIDE\POTASSIUM CHLORIDE\SODIUM ACETATE\ [Concomitant]
     Active Substance: CALCIUM CHLORIDE\MAGNESIUM CHLORIDE\POTASSIUM CHLORIDE\SODIUM ACETATE\SODIUM CHLORIDE
     Dosage: 500 ML
     Dates: start: 20230426, end: 20230426
  24. CALCIUM CHLORIDE\MAGNESIUM CHLORIDE\POTASSIUM CHLORIDE\SODIUM ACETATE\ [Concomitant]
     Active Substance: CALCIUM CHLORIDE\MAGNESIUM CHLORIDE\POTASSIUM CHLORIDE\SODIUM ACETATE\SODIUM CHLORIDE
     Dosage: 500 ML
     Dates: start: 20230802, end: 20230802
  25. UNSPECIFIED INGREDIENT [Concomitant]
     Active Substance: UNSPECIFIED INGREDIENT
     Dates: start: 202307

REACTIONS (10)
  - Apathy [Recovering/Resolving]
  - Hypotonia [Recovering/Resolving]
  - Diet refusal [Recovering/Resolving]
  - Breath sounds abnormal [Recovering/Resolving]
  - Language disorder [Recovering/Resolving]
  - Dysphagia [Recovering/Resolving]
  - Muscular weakness [Recovering/Resolving]
  - Dyspnoea [Recovering/Resolving]
  - Pyrexia [Recovering/Resolving]
  - Overdose [Unknown]

NARRATIVE: CASE EVENT DATE: 20230801
